FAERS Safety Report 8371875-9 (Version None)
Quarter: 2012Q2

REPORT INFORMATION
  Report Type: 
  Country: None (occurrence: None)
  Receive Date: 20120518
  Receipt Date: 20120509
  Transmission Date: 20120825
  Serious: Yes (Hospitalization)
  Sender: FDA-Public Use
  Company Number: FR-ROCHE-1067641

PATIENT
  Sex: Female

DRUGS (12)
  1. PAROXETINE HYDROCHLORIDE [Concomitant]
     Route: 048
  2. CIPROFLOXACIN HYDROCHLORIDE [Suspect]
     Indication: PRODUCT USED FOR UNKNOWN INDICATION
     Route: 048
     Dates: start: 20111213, end: 20111217
  3. ROCEPHIN [Suspect]
     Indication: PRODUCT USED FOR UNKNOWN INDICATION
     Route: 030
     Dates: start: 20111213, end: 20111217
  4. NEXIUM [Concomitant]
  5. ACETAMINOPHEN [Concomitant]
  6. KEPPRA [Concomitant]
  7. TENORMIN [Concomitant]
  8. SOLU-MEDROL [Concomitant]
  9. PENTOXIFYLLINE [Suspect]
     Indication: PRODUCT USED FOR UNKNOWN INDICATION
     Route: 048
     Dates: end: 20111217
  10. TRAMADOL HYDROCHLORIDE [Concomitant]
  11. VALGANCICLOVIR [Concomitant]
  12. DIGOXIN [Concomitant]

REACTIONS (1)
  - ABDOMINAL WALL HAEMATOMA [None]
